FAERS Safety Report 5483010-5 (Version None)
Quarter: 2007Q4

REPORT INFORMATION
  Report Type: 
  Country: None (occurrence: None)
  Receive Date: 20071005
  Receipt Date: 20070919
  Transmission Date: 20080405
  Serious: Yes (Life-Threatening)
  Sender: FDA-Public Use
  Company Number: 2007US002172

PATIENT
  Age: 65 Year
  Sex: Male

DRUGS (8)
  1. AMBISOME [Suspect]
     Indication: ANTIFUNGAL PROPHYLAXIS
     Dosage: 3 MG/KG, 3XWEEKLY, IV NOS
     Route: 042
     Dates: start: 20070820
  2. RAPAMYCIN (SIROLIMUS) [Concomitant]
  3. MYCOPHENOLATE MOFETIL [Concomitant]
  4. ACYCLOVIR [Concomitant]
  5. CEFTAZIDIME [Concomitant]
  6. OMEPRAZOLE [Concomitant]
  7. PARACETAMOL [Concomitant]
  8. EL-4 (POTASSIUM CHLORIDE, SODIUM CHLORIDE) [Concomitant]

REACTIONS (1)
  - SEPTIC SHOCK [None]
